FAERS Safety Report 5800759-2 (Version None)
Quarter: 2008Q3

REPORT INFORMATION
  Report Type: 
  Country: None (occurrence: None)
  Receive Date: 20080701
  Receipt Date: 20080619
  Transmission Date: 20090109
  Serious: Yes (Hospitalization)
  Sender: FDA-Public Use
  Company Number: 2008001422

PATIENT
  Age: 50 Year
  Sex: Female

DRUGS (5)
  1. ERLOTINIB (ERLOTINIB) (TABLET) (ERLOTINIB) [Suspect]
     Indication: HEAD AND NECK CANCER
     Dosage: (150 MG,QD), ORAL
     Route: 048
     Dates: start: 20080428, end: 20080525
  2. CISPLATIN [Suspect]
     Indication: HEAD AND NECK CANCER
     Dosage: (30 MG/M2,QW), INTRAVENOUS
     Route: 042
     Dates: start: 20080428, end: 20080519
  3. DICLOFENAC SODIUM [Concomitant]
  4. FENTANILO [Concomitant]
  5. CITALOPRAM HYDROBROMIDE [Concomitant]

REACTIONS (5)
  - DYSPHAGIA [None]
  - FOOD INTOLERANCE [None]
  - MUCOSAL INFLAMMATION [None]
  - SKIN INFLAMMATION [None]
  - VOMITING [None]
